FAERS Safety Report 4705961-9 (Version None)
Quarter: 2005Q2

REPORT INFORMATION
  Report Type: 
  Country: None (occurrence: None)
  Receive Date: 20050628
  Receipt Date: 20041206
  Transmission Date: 20051028
  Serious: Yes (Hospitalization)
  Sender: FDA-Public Use
  Company Number: VISP-PR-0412S-0510

PATIENT
  Age: 84 Year
  Sex: Female

DRUGS (3)
  1. VISIPAQUE [Suspect]
     Indication: PANCREATIC CARCINOMA
     Dosage: 150 ML, SINGLE DOSE, I.V.
     Route: 042
     Dates: start: 20040218, end: 20040218
  2. PREDNISONE TAB [Concomitant]
  3. BENADRYL [Concomitant]

REACTIONS (1)
  - DYSPNOEA [None]
